FAERS Safety Report 6897076-9 (Version None)
Quarter: 2010Q3

REPORT INFORMATION
  Report Type: 
  Country: None (occurrence: None)
  Receive Date: 20100802
  Receipt Date: 20070409
  Transmission Date: 20110219
  Serious: No
  Sender: FDA-Public Use
  Company Number: US-PFIZER INC-2007028487

PATIENT
  Age: 65 Year
  Sex: Female
  Weight: 65.8 kg

DRUGS (5)
  1. LYRICA [Suspect]
  2. ZYRTEC [Suspect]
  3. ULTRAM [Suspect]
  4. AMBIEN [Suspect]
  5. ANTI-DIABETICS [Concomitant]

REACTIONS (1)
  - CONFUSIONAL STATE [None]
